FAERS Safety Report 18344581 (Version 2)
Quarter: 2021Q1

REPORT INFORMATION
  Report Type: Report from Study
  Country: DE (occurrence: DE)
  Receive Date: 20201005
  Receipt Date: 20210104
  Transmission Date: 20210419
  Serious: Yes (Hospitalization, Other)
  Sender: FDA-Public Use
  Company Number: NVSC2020DE267155

PATIENT
  Sex: Female
  Weight: 55 kg

DRUGS (4)
  1. PREGABALINE [Concomitant]
     Active Substance: PREGABALIN
     Indication: PRODUCT USED FOR UNKNOWN INDICATION
     Dosage: 1 DF (ONCE IN THE EVENING, 0?0?50
     Route: 065
  2. VITAMIN D3?HEVERT [Concomitant]
     Indication: PROPHYLAXIS
     Dosage: UNK UNK, QD (2 DOSE UNIT, ONCE DAILY IN THE MORNING)
     Route: 065
     Dates: start: 20131017, end: 20201215
  3. GILENYA [Suspect]
     Active Substance: FINGOLIMOD HYDROCHLORIDE
     Indication: MULTIPLE SCLEROSIS
     Dosage: 0.5 MG, QD
     Route: 048
     Dates: start: 20171114
  4. DEKRISTOLVIT D3 [Concomitant]
     Indication: VITAMIN D DEFICIENCY
     Dosage: 1 DF (ONCE IN THE MORNING)
     Route: 065
     Dates: start: 20201216

REACTIONS (3)
  - Neuralgia [Recovered/Resolved]
  - Ophthalmic herpes zoster [Recovered/Resolved]
  - Infection susceptibility increased [Unknown]

NARRATIVE: CASE EVENT DATE: 20200705
